FAERS Safety Report 9289884 (Version 1)
Quarter: 2013Q2

REPORT INFORMATION
  Report Type: Report from Study
  Country: BR (occurrence: BR)
  Receive Date: 20130515
  Receipt Date: 20130515
  Transmission Date: 20140414
  Serious: Yes (Other)
  Sender: FDA-Public Use
  Company Number: PHHY2012BR071579

PATIENT
  Age: 66 Year
  Sex: Female

DRUGS (4)
  1. DIOVAN AMLO FIX [Suspect]
     Indication: HYPERTENSION
     Dosage: 1 DF (80 VALS /5 AMLO MG), QD (IN THE MORNING)
  2. DIOVAN AMLO FIX [Suspect]
     Dosage: 0.5 DF (80 VALS /5 AMLO MG), DAILY
  3. RASILEZ [Concomitant]
     Indication: HYPERTENSION
     Dosage: 1 DF(150MG), DAILY
     Route: 048
  4. VALERIAN [Concomitant]
     Indication: FEELING OF RELAXATION
     Dosage: 2 DF, DAILY
     Route: 048

REACTIONS (9)
  - Foot fracture [Recovering/Resolving]
  - Ligament sprain [Unknown]
  - Hypertension [Unknown]
  - Feeling abnormal [Recovered/Resolved]
  - Anaemia [Recovered/Resolved]
  - Tension [Recovering/Resolving]
  - Anxiety [Unknown]
  - Blood pressure inadequately controlled [Recovering/Resolving]
  - Wrong technique in drug usage process [Unknown]
